FAERS Safety Report 7459580-4 (Version None)
Quarter: 2011Q2

REPORT INFORMATION
  Report Type: 
  Country: None (occurrence: None)
  Receive Date: 20110505
  Receipt Date: 20110421
  Transmission Date: 20111010
  Serious: Yes (Hospitalization, Other)
  Sender: FDA-Public Use
  Company Number: FR-PFIZER INC-2011095658

PATIENT
  Age: 82 Year
  Sex: Female

DRUGS (9)
  1. ZOPICLONE [Concomitant]
     Dosage: 7.5 MG, UNK
     Route: 048
     Dates: end: 20100720
  2. SULFARLEM [Concomitant]
     Dosage: UNK
     Dates: end: 20100720
  3. FLUANXOL [Suspect]
     Dosage: 20 GTT, 2X/DAY
     Route: 048
     Dates: end: 20100722
  4. LEPTICUR [Suspect]
     Dosage: UNK
     Route: 048
     Dates: end: 20100722
  5. ALLOPURINOL [Concomitant]
     Dosage: UNK
     Dates: end: 20100720
  6. TAREG [Concomitant]
     Dosage: UNK
     Dates: end: 20100720
  7. LODOZ [Concomitant]
     Dosage: UNK
     Dates: end: 20100720
  8. ATHYMIL [Suspect]
     Dosage: UNK
     Route: 048
     Dates: end: 20100722
  9. ATARAX [Suspect]
     Dosage: 25 MG, 2X/DAY
     Route: 048
     Dates: end: 20100722

REACTIONS (17)
  - JUGULAR VEIN DISTENSION [None]
  - RENAL IMPAIRMENT [None]
  - HYPOCALCAEMIA [None]
  - EXTRAPYRAMIDAL DISORDER [None]
  - DISORIENTATION [None]
  - HYPERKALAEMIA [None]
  - GENERAL PHYSICAL CONDITION ABNORMAL [None]
  - FALL [None]
  - TRANSAMINASES INCREASED [None]
  - DECREASED APPETITE [None]
  - VOMITING [None]
  - HYPONATRAEMIA [None]
  - RHABDOMYOLYSIS [None]
  - OEDEMA PERIPHERAL [None]
  - URINARY TRACT INFECTION [None]
  - HYPERTENSION [None]
  - HEPATOJUGULAR REFLUX [None]
